FAERS Safety Report 4431208-7 (Version None)
Quarter: 2004Q3

REPORT INFORMATION
  Report Type: 
  Country: None (occurrence: None)
  Receive Date: 20040823
  Receipt Date: 20040823
  Transmission Date: 20050211
  Serious: Yes (Disabling)
  Sender: FDA-Public Use
  Company Number: None

PATIENT
  Sex: Female
  Weight: 65.7716 kg

DRUGS (2)
  1. SYNVISC [Suspect]
     Indication: ARTHROPATHY
     Dosage: 1XWK  3 WEEKS  OTHER
     Route: 048
     Dates: start: 20031209, end: 20031223
  2. SYNVISC [Suspect]
     Indication: FLUID RETENTION
     Dosage: 1XWK  3 WEEKS  OTHER
     Route: 048
     Dates: start: 20031209, end: 20031223

REACTIONS (5)
  - ARTHRALGIA [None]
  - AUTOIMMUNE DISORDER [None]
  - CHONDROPATHY [None]
  - PAIN [None]
  - THYROID DISORDER [None]
